FAERS Safety Report 14018485 (Version 1)
Quarter: 2017Q3

REPORT INFORMATION
  Report Type: Spontaneous
  Country: US (occurrence: None)
  Receive Date: 20170928
  Receipt Date: 20170928
  Transmission Date: 20171128
  Serious: Yes (Disabling, Other)
  Sender: FDA-Public Use
  Company Number: None

PATIENT
  Sex: Female
  Weight: 58 kg

DRUGS (1)
  1. NEXPLANON [Suspect]
     Active Substance: ETONOGESTREL

REACTIONS (5)
  - Depression [None]
  - Anger [None]
  - Self-injurious ideation [None]
  - Emotional disorder [None]
  - Violence-related symptom [None]

NARRATIVE: CASE EVENT DATE: 20150415
